FAERS Safety Report 21185300 (Version 1)
Quarter: 2022Q3

REPORT INFORMATION
  Report Type: Spontaneous
  Country: US (occurrence: US)
  Receive Date: 20220808
  Receipt Date: 20220808
  Transmission Date: 20221027
  Serious: No
  Sender: FDA-Public Use
  Company Number: US-BIOVITRUM-2022US09166

PATIENT
  Age: 33 Year
  Sex: Male

DRUGS (1)
  1. KINERET [Suspect]
     Active Substance: ANAKINRA
     Indication: Pericardial disease
     Dates: start: 202006

REACTIONS (2)
  - Ligament rupture [Unknown]
  - Off label use [Unknown]

NARRATIVE: CASE EVENT DATE: 20200601
